FAERS Safety Report 6663229-8 (Version None)
Quarter: 2010Q2

REPORT INFORMATION
  Report Type: 
  Country: None (occurrence: None)
  Receive Date: 20100401
  Receipt Date: 20100325
  Transmission Date: 20101027
  Serious: Yes (Hospitalization, Other)
  Sender: FDA-Public Use
  Company Number: PHHY2009BR54237

PATIENT
  Age: 66 Year
  Sex: Female

DRUGS (1)
  1. DIOVAN AMLO [Suspect]
     Indication: HYPERTENSION
     Dosage: 1 DF (160/5 MG), QD

REACTIONS (1)
  - CEREBROVASCULAR ACCIDENT [None]
